FAERS Safety Report 5890823-4 (Version None)
Quarter: 2008Q3

REPORT INFORMATION
  Report Type: 
  Country: None (occurrence: None)
  Receive Date: 20080922
  Receipt Date: 20080911
  Transmission Date: 20090109
  Serious: Yes (Death)
  Sender: FDA-Public Use
  Company Number: AU-BAXTER-2008BH009756

PATIENT
  Age: 53 Year
  Sex: Female

DRUGS (2)
  1. SUPRANE [Suspect]
     Indication: OESOPHAGOCARDIOMYOTOMY
     Route: 055
     Dates: start: 20041110, end: 20041110
  2. SUPRANE [Suspect]
     Route: 055
     Dates: start: 20041120, end: 20041120

REACTIONS (1)
  - ACUTE HEPATIC FAILURE [None]
